FAERS Safety Report 6643431-1 (Version None)
Quarter: 2010Q1

REPORT INFORMATION
  Report Type: 
  Country: None (occurrence: None)
  Receive Date: 20100319
  Receipt Date: 20100316
  Transmission Date: 20100710
  Serious: Yes (Hospitalization)
  Sender: FDA-Public Use
  Company Number: IT-MERCK-1003ITA00030

PATIENT
  Age: 82 Year
  Sex: Male

DRUGS (7)
  1. PROSCAR [Suspect]
     Indication: BENIGN PROSTATIC HYPERPLASIA
     Route: 048
     Dates: start: 20011207
  2. ASPIRIN [Concomitant]
     Route: 048
  3. ISOSORBIDE MONONITRATE [Concomitant]
     Route: 048
  4. TAMSULOSIN HYDROCHLORIDE [Concomitant]
     Route: 048
  5. SUCRALFATE [Concomitant]
     Route: 048
  6. PRULIFLOXACIN [Concomitant]
     Route: 048
  7. PRAMIPEXOLE DIHYDROCHLORIDE [Concomitant]
     Route: 048

REACTIONS (1)
  - BREAST CANCER [None]
